FAERS Safety Report 7522893-1 (Version None)
Quarter: 2011Q2

REPORT INFORMATION
  Report Type: 
  Country: None (occurrence: None)
  Receive Date: 20110603
  Receipt Date: 20110524
  Transmission Date: 20111010
  Serious: Yes (Other)
  Sender: FDA-Public Use
  Company Number: PHHY2011US37085

PATIENT
  Sex: Female
  Weight: 102.4 kg

DRUGS (1)
  1. GILENYA [Suspect]
     Indication: MULTIPLE SCLEROSIS
     Dosage: 0.5 MG, QD
     Route: 048
     Dates: start: 20110407, end: 20110420

REACTIONS (12)
  - NAUSEA [None]
  - HYPERTENSION [None]
  - HEADACHE [None]
  - DEPRESSION [None]
  - ABDOMINAL PAIN UPPER [None]
  - BALANCE DISORDER [None]
  - HEPATIC PAIN [None]
  - NEUROGENIC BLADDER [None]
  - VISION BLURRED [None]
  - PAIN [None]
  - FALL [None]
  - FATIGUE [None]
